FAERS Safety Report 7345372-3 (Version None)
Quarter: 2011Q1

REPORT INFORMATION
  Report Type: 
  Country: None (occurrence: None)
  Receive Date: 20110310
  Receipt Date: 20110225
  Transmission Date: 20110831
  Serious: Yes (Other)
  Sender: FDA-Public Use
  Company Number: PHHY2011US16296

PATIENT
  Sex: Female

DRUGS (11)
  1. HYDROCODONE BITARTRATE [Concomitant]
  2. ZOMETA [Suspect]
     Indication: METASTASES TO BONE
     Dosage: 4 MG, UNK
     Dates: start: 20090601
  3. SINGULAIR [Concomitant]
     Dosage: 10 MG, QD
  4. CLARITIN [Concomitant]
  5. AROMASIN [Concomitant]
  6. VITAMINS NOS [Concomitant]
  7. HYDROCODONE BITARTRATE AND ACETAMINOPHEN [Concomitant]
     Dosage: 7.5/ 750 MG, Q5H
  8. EFFEXOR [Concomitant]
     Dosage: 37.5 MG, QD
  9. ZOMETA [Suspect]
     Dosage: EVERY 6 WEEKS
     Dates: start: 20110218
  10. SYNTHROID [Concomitant]
     Dosage: 150 UG, QD
  11. PREDNISONE [Concomitant]
     Dosage: 3 MG, QD

REACTIONS (3)
  - PARALYSIS [None]
  - HYPOKINESIA [None]
  - PAIN [None]
